FAERS Safety Report 10297064 (Version 1)
Quarter: 2014Q3

REPORT INFORMATION
  Report Type: Spontaneous
  Country: US (occurrence: US)
  Receive Date: 20140711
  Receipt Date: 20140711
  Transmission Date: 20150326
  Serious: Yes (Other)
  Sender: FDA-Public Use
  Company Number: US-009507513-1407USA002861

PATIENT
  Sex: Female
  Weight: 88.44 kg

DRUGS (1)
  1. NUVARING [Suspect]
     Active Substance: ETHINYL ESTRADIOL\ETONOGESTREL
     Indication: CONTRACEPTION
     Dosage: ONE RING, FREQUENCY: NOT PROVIDED
     Route: 067

REACTIONS (2)
  - Abortion [Recovering/Resolving]
  - Unintended pregnancy [Recovered/Resolved]
